FAERS Safety Report 13363118 (Version 2)
Quarter: 2018Q1

REPORT INFORMATION
  Report Type: Spontaneous
  Country: GB (occurrence: GB)
  Receive Date: 20170323
  Receipt Date: 20180131
  Transmission Date: 20180508
  Serious: Yes (Hospitalization, Other)
  Sender: FDA-Public Use
  Company Number: GB-MYLANLABS-2017M1016969

PATIENT
  Age: 55 Year
  Sex: Male

DRUGS (2)
  1. CLOZARIL [Suspect]
     Active Substance: CLOZAPINE
     Dosage: UNK, AM
     Route: 048
     Dates: start: 20170314, end: 20170314
  2. CLOZARIL [Suspect]
     Active Substance: CLOZAPINE
     Indication: SCHIZOPHRENIA
     Dosage: UNK
     Route: 048
     Dates: start: 20170225

REACTIONS (12)
  - Hyponatraemia [Recovered/Resolved]
  - Blood osmolarity decreased [Unknown]
  - Amylase decreased [Unknown]
  - Faecaloma [Unknown]
  - Diarrhoea [Unknown]
  - Blood urine [Unknown]
  - Neutrophil count increased [Recovered/Resolved]
  - Haemoglobin decreased [Recovering/Resolving]
  - Monocyte count increased [Recovering/Resolving]
  - Blood creatinine decreased [Unknown]
  - Urine ketone body [Unknown]
  - Blood phosphorus increased [Unknown]

NARRATIVE: CASE EVENT DATE: 2017
